FAERS Safety Report 11350387 (Version 2)
Quarter: 2015Q4

REPORT INFORMATION
  Report Type: Spontaneous
  Country: FR (occurrence: FR)
  Receive Date: 20150807
  Receipt Date: 20151106
  Transmission Date: 20160304
  Serious: Yes (Hospitalization, Other)
  Sender: FDA-Public Use
  Company Number: FR-BRISTOL-MYERS SQUIBB COMPANY-BMS-2015-050761

PATIENT
  Age: 41 Year
  Sex: Female
  Weight: 64 kg

DRUGS (4)
  1. MIANSERINE [Concomitant]
     Active Substance: MIANSERIN HYDROCHLORIDE
     Indication: PRODUCT USED FOR UNKNOWN INDICATION
     Dosage: 30 MG, TID
     Route: 048
     Dates: start: 2014
  2. IMOVANE [Concomitant]
     Active Substance: ZOPICLONE
     Indication: PRODUCT USED FOR UNKNOWN INDICATION
     Dosage: 10 MG, QD
     Route: 048
  3. EFFEXOR [Suspect]
     Active Substance: VENLAFAXINE HYDROCHLORIDE
     Indication: PRODUCT USED FOR UNKNOWN INDICATION
     Dosage: 225 MG, TID
     Route: 048
     Dates: start: 2014
  4. ABILIFY [Suspect]
     Active Substance: ARIPIPRAZOLE
     Indication: PRODUCT USED FOR UNKNOWN INDICATION
     Dosage: 10 MG, QD
     Route: 048
     Dates: start: 2014, end: 20150716

REACTIONS (6)
  - Hepatocellular injury [Unknown]
  - Transaminases increased [Unknown]
  - Blood creatine phosphokinase increased [Recovering/Resolving]
  - Rhabdomyolysis [Recovering/Resolving]
  - Fall [Unknown]
  - Inflammation [Unknown]

NARRATIVE: CASE EVENT DATE: 201506
